FAERS Safety Report 6249301-5 (Version None)
Quarter: 2009Q2

REPORT INFORMATION
  Report Type: 
  Country: None (occurrence: None)
  Receive Date: 20090629
  Receipt Date: 20090501
  Transmission Date: 20091009
  Serious: Yes (Hospitalization)
  Sender: FDA-Public Use
  Company Number: US-BRISTOL-MYERS SQUIBB COMPANY-14603310

PATIENT
  Age: 66 Year
  Sex: Female

DRUGS (1)
  1. SPRYCEL [Suspect]
     Indication: CHRONIC MYELOID LEUKAEMIA
     Dosage: 2 DF=2TABS. STOPPED IN PREPARATION FOR THE SURGERY.
     Route: 048
     Dates: start: 20080924

REACTIONS (1)
  - POST PROCEDURAL CELLULITIS [None]
